FAERS Safety Report 16314627 (Version 1)
Quarter: 2019Q2

REPORT INFORMATION
  Report Type: Spontaneous
  Country: US (occurrence: US)
  Receive Date: 20190515
  Receipt Date: 20190515
  Transmission Date: 20190711
  Serious: Yes (Other)
  Sender: FDA-Public Use
  Company Number: US-SA-2019SA130515

PATIENT
  Age: 61 Year
  Sex: Female

DRUGS (19)
  1. DOCUSATE CALCIUM. [Concomitant]
     Active Substance: DOCUSATE CALCIUM
  2. FISH OIL [Concomitant]
     Active Substance: FISH OIL
  3. VITAMIN C [Concomitant]
     Active Substance: ASCORBIC ACID
  4. CETIRIZINE HYDROCHLORIDE. [Concomitant]
     Active Substance: CETIRIZINE HYDROCHLORIDE
  5. MAGNESIUM [Concomitant]
     Active Substance: MAGNESIUM
  6. BIOTIN [Concomitant]
     Active Substance: BIOTIN
  7. GABAPENTIN. [Concomitant]
     Active Substance: GABAPENTIN
  8. POLYETHYLENE [Concomitant]
     Active Substance: HIGH DENSITY POLYETHYLENE
  9. AUBAGIO [Suspect]
     Active Substance: TERIFLUNOMIDE
     Dosage: 14 MG, QD
     Route: 048
     Dates: start: 201902
  10. ROSUVASTATIN. [Concomitant]
     Active Substance: ROSUVASTATIN
  11. VITAMIN B CO [Concomitant]
  12. AZITHROMYCIN ANHYDROUS. [Concomitant]
     Active Substance: AZITHROMYCIN ANHYDROUS
  13. BACLOFEN. [Concomitant]
     Active Substance: BACLOFEN
  14. CALCIUM [Concomitant]
     Active Substance: CALCIUM
  15. IPRATROPIUM [Concomitant]
     Active Substance: IPRATROPIUM
  16. MULTIVITAMIN [VITAMINS NOS] [Concomitant]
  17. TIZANIDINE. [Concomitant]
     Active Substance: TIZANIDINE
  18. MONTELUKAST [Concomitant]
     Active Substance: MONTELUKAST SODIUM
  19. OMEPRAZOLE. [Concomitant]
     Active Substance: OMEPRAZOLE

REACTIONS (9)
  - Balance disorder [Not Recovered/Not Resolved]
  - Dysphagia [Unknown]
  - Paraesthesia [Not Recovered/Not Resolved]
  - Hypoaesthesia [Not Recovered/Not Resolved]
  - Vertigo [Unknown]
  - Choking [Unknown]
  - Gait disturbance [Not Recovered/Not Resolved]
  - Multiple sclerosis relapse [Not Recovered/Not Resolved]
  - Pain in extremity [Not Recovered/Not Resolved]
